FAERS Safety Report 9749743 (Version 1)
Quarter: 2013Q4

REPORT INFORMATION
  Report Type: Spontaneous
  Country: US (occurrence: US)
  Receive Date: 20131212
  Receipt Date: 20131212
  Transmission Date: 20140711
  Serious: No
  Sender: FDA-Public Use
  Company Number: US-TEVA-395620USA

PATIENT
  Age: 22 Year
  Sex: Female
  Weight: 72.64 kg

DRUGS (2)
  1. PARAGARD 380A [Suspect]
     Route: 015
     Dates: start: 20130322, end: 20130328
  2. PARAGARD 380A [Suspect]
     Route: 015
     Dates: start: 20130328

REACTIONS (2)
  - Uterine spasm [Unknown]
  - Device expulsion [Recovered/Resolved]
